FAERS Safety Report 12310106 (Version 2)
Quarter: 2016Q3

REPORT INFORMATION
  Report Type: Spontaneous
  Country: CH (occurrence: CH)
  Receive Date: 20160427
  Receipt Date: 20160919
  Transmission Date: 20161109
  Serious: Yes (Hospitalization)
  Sender: FDA-Public Use
  Company Number: CH-PFIZER INC-2016225307

PATIENT
  Age: 77 Year
  Sex: Male

DRUGS (5)
  1. ASPIRIN. [Concomitant]
     Active Substance: ASPIRIN
     Indication: CORONARY ARTERY DISEASE
     Dosage: 100 MG, 1X/DAY
     Route: 048
  2. CIBACEN [Concomitant]
     Active Substance: BENAZEPRIL HYDROCHLORIDE
     Indication: HYPERTENSIVE HEART DISEASE
     Dosage: 10 MG, 1X/DAY
     Route: 048
     Dates: start: 1998, end: 20160126
  3. CIBACEN [Concomitant]
     Active Substance: BENAZEPRIL HYDROCHLORIDE
     Indication: CORONARY ARTERY DISEASE
  4. RELPAX [Suspect]
     Active Substance: ELETRIPTAN HYDROBROMIDE
     Indication: MIGRAINE
     Dosage: UNK
     Dates: start: 1998, end: 20160126
  5. SELIPRAN [Concomitant]
     Active Substance: PRAVASTATIN SODIUM
     Indication: HYPERLIPIDAEMIA
     Dosage: 20 MG, 1X/DAY
     Route: 048

REACTIONS (4)
  - Drug abuse [Unknown]
  - Neurological symptom [Unknown]
  - Confusional state [Recovered/Resolved]
  - Medication overuse headache [Recovered/Resolved]

NARRATIVE: CASE EVENT DATE: 201601
